FAERS Safety Report 8309577-7 (Version None)
Quarter: 2012Q2

REPORT INFORMATION
  Report Type: 
  Country: None (occurrence: None)
  Receive Date: 20120420
  Receipt Date: 20120410
  Transmission Date: 20120825
  Serious: Yes (Other)
  Sender: FDA-Public Use
  Company Number: 2012SP015287

PATIENT
  Age: 64 Year
  Sex: Female

DRUGS (3)
  1. PEGASYS [Suspect]
     Indication: HEPATITIS C
     Dosage: 180 MCG;SC
     Route: 058
     Dates: start: 20111214
  2. RIBAVIRIN [Suspect]
     Indication: HEPATITIS C
     Dosage: 1200 MG;QD;PO
     Route: 048
     Dates: start: 20111214
  3. VICTRELIS [Suspect]
     Indication: HEPATITIS C
     Dosage: 800 MG;Q8H
     Dates: start: 20120105

REACTIONS (10)
  - BLINDNESS [None]
  - VOMITING [None]
  - HYPERHIDROSIS [None]
  - DIARRHOEA [None]
  - DEAFNESS UNILATERAL [None]
  - MIGRAINE [None]
  - NAUSEA [None]
  - ANGER [None]
  - ANAEMIA [None]
  - DEPRESSION [None]
